FAERS Safety Report 14821073 (Version 1)
Quarter: 2018Q2

REPORT INFORMATION
  Report Type: Spontaneous
  Country: FR (occurrence: FR)
  Receive Date: 20180427
  Receipt Date: 20180427
  Transmission Date: 20180711
  Serious: Yes (Hospitalization)
  Sender: FDA-Public Use
  Company Number: FR-ASTRAZENECA-2018SE53633

PATIENT
  Age: 86 Year
  Sex: Female
  Weight: 53 kg

DRUGS (10)
  1. BISOPROLOL [Concomitant]
     Active Substance: BISOPROLOL
     Dosage: 2.5MG UNKNOWN
     Route: 048
  2. CLARADOL [Concomitant]
     Active Substance: ACETAMINOPHEN
     Dosage: SI BESOIN
     Route: 048
     Dates: start: 20180108
  3. FUROSEMIDE. [Concomitant]
     Active Substance: FUROSEMIDE
     Route: 048
     Dates: start: 20180212
  4. SERESTA [Concomitant]
     Active Substance: OXAZEPAM
     Dosage: 3.0DF UNKNOWN
     Route: 048
  5. XEROQUEL [Suspect]
     Active Substance: QUETIAPINE FUMARATE
     Indication: DEPRESSIVE SYMPTOM
     Route: 048
     Dates: start: 20180213, end: 20180217
  6. PRADAXA [Concomitant]
     Active Substance: DABIGATRAN ETEXILATE MESYLATE
     Route: 048
     Dates: end: 20180217
  7. LEVOTHYROX [Concomitant]
     Active Substance: LEVOTHYROXINE
     Indication: HYPOTHYROIDISM
     Dosage: 1.0DF UNKNOWN
     Route: 048
  8. RAMIPRIL. [Concomitant]
     Active Substance: RAMIPRIL
     Route: 048
     Dates: end: 20180217
  9. AMIODARONE [Concomitant]
     Active Substance: AMIODARONE
     Indication: ATRIAL FIBRILLATION
     Dosage: 200.0MG UNKNOWN
     Route: 048
  10. MOVICOL [Concomitant]
     Active Substance: POLYETHYLENE GLYCOL 3350\POTASSIUM CHLORIDE\SODIUM BICARBONATE\SODIUM CHLORIDE
     Dosage: 2.0DF UNKNOWN
     Route: 048

REACTIONS (1)
  - Dementia [Recovering/Resolving]

NARRATIVE: CASE EVENT DATE: 20180217
